FAERS Safety Report 6914731-2 (Version None)
Quarter: 2010Q3

REPORT INFORMATION
  Report Type: 
  Country: None (occurrence: None)
  Receive Date: 20100809
  Receipt Date: 20100730
  Transmission Date: 20110219
  Serious: Yes (Other)
  Sender: FDA-Public Use
  Company Number: US-AMGEN-QUU421231

PATIENT
  Sex: Female
  Weight: 107.1 kg

DRUGS (8)
  1. ENBREL [Suspect]
     Indication: PRODUCT USED FOR UNKNOWN INDICATION
     Route: 058
     Dates: start: 20100617
  2. PREDNISONE [Concomitant]
  3. PLAQUENIL [Concomitant]
  4. IBUPROFEN [Concomitant]
  5. FOLIC ACID [Concomitant]
  6. CALCIUM CARBONATE/VITAMIN D [Concomitant]
  7. VICODIN [Concomitant]
  8. LASIX [Concomitant]

REACTIONS (2)
  - MITRAL VALVE PROLAPSE [None]
  - PALPITATIONS [None]
